FAERS Safety Report 13915767 (Version 1)
Quarter: 2017Q3

REPORT INFORMATION
  Report Type: Spontaneous
  Country: US (occurrence: US)
  Receive Date: 20170829
  Receipt Date: 20170829
  Transmission Date: 20171127
  Serious: Yes (Death, Hospitalization, Other)
  Sender: FDA-Public Use
  Company Number: US-IPCA LABORATORIES LIMITED-IPC-2017-US-002656

PATIENT

DRUGS (4)
  1. FENTANYL. [Suspect]
     Active Substance: FENTANYL
     Indication: PRODUCT USED FOR UNKNOWN INDICATION
  2. PROPOFOL. [Suspect]
     Active Substance: PROPOFOL
     Indication: PRODUCT USED FOR UNKNOWN INDICATION
  3. ANTIBIOTICS [Suspect]
     Active Substance: UNSPECIFIED INGREDIENT
     Indication: PRODUCT USED FOR UNKNOWN INDICATION
  4. HYDROXYCHLOROQUINE SULFATE 200MG TABLETS, USP [Suspect]
     Active Substance: HYDROXYCHLOROQUINE SULFATE
     Indication: SYSTEMIC LUPUS ERYTHEMATOSUS
     Dosage: UNK
     Dates: start: 201002

REACTIONS (11)
  - Death [Fatal]
  - Adverse drug reaction [Recovering/Resolving]
  - Mental disorder [Unknown]
  - Toxicity to various agents [Unknown]
  - Pelvic pain [Recovering/Resolving]
  - Weight decreased [Recovering/Resolving]
  - Disturbance in attention [Recovering/Resolving]
  - Abdominal pain upper [Recovering/Resolving]
  - Disease progression [Unknown]
  - Renal failure [Unknown]
  - Condition aggravated [Unknown]
